FAERS Safety Report 25076743 (Version 1)
Quarter: 2025Q1

REPORT INFORMATION
  Report Type: Spontaneous
  Country: PL (occurrence: PL)
  Receive Date: 20250313
  Receipt Date: 20250313
  Transmission Date: 20250409
  Serious: Yes (Hospitalization)
  Sender: PRINSTON PHARMACEUTICAL
  Company Number: PL-PRINSTON PHARMACEUTICAL INC.-2025PRN00068

PATIENT
  Age: 64 Year

DRUGS (1)
  1. GLIMEPIRIDE [Suspect]
     Active Substance: GLIMEPIRIDE
     Indication: Type 2 diabetes mellitus
     Dosage: UNK, 2X/DAY

REACTIONS (2)
  - Hypoglycaemic encephalopathy [Unknown]
  - Toxicity to various agents [Unknown]
